FAERS Safety Report 6372957-3 (Version None)
Quarter: 2009Q3

REPORT INFORMATION
  Report Type: 
  Country: None (occurrence: None)
  Receive Date: 20090924
  Receipt Date: 20081211
  Transmission Date: 20100115
  Serious: No
  Sender: FDA-Public Use
  Company Number: US-ASTRAZENECA-2008UW27814

PATIENT
  Age: 50 Year
  Sex: Female

DRUGS (4)
  1. SEROQUEL [Suspect]
     Route: 048
  2. GEODON [Concomitant]
  3. LEXAPRO [Concomitant]
  4. HALDOL [Concomitant]

REACTIONS (1)
  - MUSCULOSKELETAL STIFFNESS [None]
